FAERS Safety Report 21210365 (Version 2)
Quarter: 2022Q4

REPORT INFORMATION
  Report Type: Spontaneous
  Country: US (occurrence: US)
  Receive Date: 20220815
  Receipt Date: 20221020
  Transmission Date: 20230113
  Serious: Yes (Other)
  Sender: FDA-Public Use
  Company Number: US-JNJFOC-20220819679

PATIENT
  Sex: Female

DRUGS (5)
  1. ELMIRON [Suspect]
     Active Substance: PENTOSAN POLYSULFATE SODIUM
     Indication: Cystitis interstitial
     Dosage: THERAPY START DATE: OCT-1988. 300MG/DAILY
     Route: 048
  2. ELMIRON [Suspect]
     Active Substance: PENTOSAN POLYSULFATE SODIUM
     Dosage: 300MG/DAILY
     Route: 048
     Dates: start: 1996, end: 2014
  3. ELMIRON [Suspect]
     Active Substance: PENTOSAN POLYSULFATE SODIUM
     Dosage: 300MG/DAILY
     Route: 048
     Dates: start: 2014, end: 2019
  4. ELMIRON [Suspect]
     Active Substance: PENTOSAN POLYSULFATE SODIUM
     Dosage: PPS 100 MG, TWICE DAILY (BID)
     Route: 048
  5. ELMIRON [Suspect]
     Active Substance: PENTOSAN POLYSULFATE SODIUM
     Route: 048
     Dates: end: 2020

REACTIONS (3)
  - Dry age-related macular degeneration [Unknown]
  - Maculopathy [Unknown]
  - Off label use [Unknown]
